FAERS Safety Report 7584761-9 (Version None)
Quarter: 2011Q2

REPORT INFORMATION
  Report Type: 
  Country: None (occurrence: None)
  Receive Date: 20110630
  Receipt Date: 20110620
  Transmission Date: 20111010
  Serious: Yes (Death, Hospitalization, Other)
  Sender: FDA-Public Use
  Company Number: PHHY2011PL39904

PATIENT
  Sex: Male
  Weight: 65 kg

DRUGS (5)
  1. EXELON [Suspect]
     Indication: DEMENTIA ALZHEIMER'S TYPE
     Dosage: 9.5 MG/24 HOURS
     Route: 062
     Dates: start: 20100415, end: 20110310
  2. EXELON [Suspect]
     Dosage: 6 MG, BID
     Dates: start: 20091201
  3. EXELON [Suspect]
     Dosage: 4.5 MG, BID
     Dates: start: 20080501
  4. EXELON [Suspect]
     Dosage: 3 MG, BID
     Dates: start: 20070801
  5. EXELON [Suspect]
     Dosage: 1.5 MG, BID
     Dates: start: 20070501

REACTIONS (2)
  - PULMONARY OEDEMA [None]
  - DEATH [None]
